FAERS Safety Report 19985138 (Version 1)
Quarter: 2021Q4

REPORT INFORMATION
  Report Type: Spontaneous
  Country: RU (occurrence: RU)
  Receive Date: 20211022
  Receipt Date: 20211022
  Transmission Date: 20220304
  Serious: Yes (Other)
  Sender: FDA-Public Use
  Company Number: RU-GUERBET-RU-20210008

PATIENT
  Age: 60 Year
  Sex: Female
  Weight: 73 kg

DRUGS (2)
  1. OPTIRAY [Suspect]
     Active Substance: IOVERSOL
     Indication: Single photon emission computerised tomogram
     Route: 042
     Dates: start: 20210922, end: 20210922
  2. METOPROLOL [Concomitant]
     Active Substance: METOPROLOL
     Indication: Atrial fibrillation
     Route: 048

REACTIONS (2)
  - Erythema of eyelid [Recovered/Resolved]
  - Pruritus [Recovered/Resolved]

NARRATIVE: CASE EVENT DATE: 20210922
